FAERS Safety Report 5219668-5 (Version None)
Quarter: 2007Q1

REPORT INFORMATION
  Report Type: 
  Country: None (occurrence: None)
  Receive Date: 20070125
  Receipt Date: 20070119
  Transmission Date: 20070707
  Serious: Yes (Hospitalization, Other)
  Sender: FDA-Public Use
  Company Number: FR-PFIZER INC-2006129763

PATIENT
  Sex: Male

DRUGS (2)
  1. TAHOR [Suspect]
  2. PYOSTACINE [Interacting]

REACTIONS (2)
  - DRUG INTERACTION [None]
  - HEPATITIS [None]
